FAERS Safety Report 10028910 (Version 2)
Quarter: 2014Q1

REPORT INFORMATION
  Report Type: Spontaneous
  Country: US (occurrence: US)
  Receive Date: 20140321
  Receipt Date: 20140321
  Transmission Date: 20141002
  Serious: Yes (Other)
  Sender: FDA-Public Use
  Company Number: US-SANOFI-AVENTIS-2012SA066402

PATIENT
  Sex: Female

DRUGS (1)
  1. PLAVIX [Suspect]
     Indication: PRODUCT USED FOR UNKNOWN INDICATION
     Dosage: CONTINUED ON PLAVIX UNTIL ON OR ABOUT MAY 2011
     Route: 048
     Dates: start: 20110510

REACTIONS (2)
  - Injury [Unknown]
  - Thrombotic thrombocytopenic purpura [Unknown]
